FAERS Safety Report 8099625-4 (Version None)
Quarter: 2012Q1

REPORT INFORMATION
  Report Type: 
  Country: None (occurrence: None)
  Receive Date: 20120131
  Receipt Date: 20120126
  Transmission Date: 20120608
  Serious: Yes (Hospitalization, Congenital Anomaly, Other)
  Sender: FDA-Public Use
  Company Number: US-PFIZER INC-2012004541

PATIENT
  Sex: Male
  Weight: 3.8 kg

DRUGS (7)
  1. ALDOMET [Concomitant]
     Dosage: 250 MG, 2X/DAY
     Route: 064
  2. FLEGYL [Concomitant]
     Dosage: 50 MG, 2X/DAY
     Route: 064
  3. CLARITIN [Concomitant]
     Dosage: AS NEEDED
     Route: 064
  4. MULTI-VITAMINS [Concomitant]
     Dosage: UNK
     Route: 064
  5. ZOLOFT [Suspect]
     Dosage: 100 MG, EVERY DAY
     Route: 064
     Dates: start: 20090814
  6. DYAZIDE [Concomitant]
     Dosage: 375 MG, EVERY 7 HOURS
     Route: 064
  7. VALTREX [Concomitant]
     Dosage: UNK
     Route: 064

REACTIONS (4)
  - ATRIAL SEPTAL DEFECT [None]
  - CYANOSIS NEONATAL [None]
  - MATERNAL EXPOSURE TIMING UNSPECIFIED [None]
  - VENTRICULAR SEPTAL DEFECT [None]
